FAERS Safety Report 25799562 (Version 1)
Quarter: 2025Q3

REPORT INFORMATION
  Report Type: Spontaneous
  Country: GB (occurrence: GB)
  Receive Date: 20250914
  Receipt Date: 20250914
  Transmission Date: 20251021
  Serious: Yes (Other)
  Sender: AUROBINDO
  Company Number: GB-MHRA-TPP60485609C9818104YC1756819709000

PATIENT
  Age: 32 Year
  Sex: Female
  Weight: 68 kg

DRUGS (6)
  1. METRONIDAZOLE [Suspect]
     Active Substance: METRONIDAZOLE
     Indication: Ill-defined disorder
     Route: 065
     Dates: start: 20250827
  2. FLUCONAZOLE [Concomitant]
     Active Substance: FLUCONAZOLE
     Indication: Ill-defined disorder
     Route: 065
     Dates: start: 20250811
  3. MICONAZOLE [Concomitant]
     Active Substance: MICONAZOLE
     Indication: Ill-defined disorder
     Route: 065
     Dates: start: 20250811
  4. CHOLECALCIFEROL [Concomitant]
     Active Substance: CHOLECALCIFEROL
     Indication: Ill-defined disorder
     Dosage: 2 DOSAGE FORM, TWO TIMES A DAY
     Route: 065
     Dates: start: 20250818
  5. FLUCLOXACILLIN [Concomitant]
     Active Substance: FLUCLOXACILLIN
     Indication: Ill-defined disorder
     Dosage: 1 DOSAGE FORM, FOUR TIMES/DAY
     Route: 065
     Dates: start: 20250901
  6. METFORMIN [Concomitant]
     Active Substance: METFORMIN HYDROCHLORIDE
     Indication: Ill-defined disorder
     Dosage: 2 DOSAGE FORM, TWO TIMES A DAY
     Route: 065
     Dates: start: 20250417

REACTIONS (5)
  - Oral allergy syndrome [Unknown]
  - Oedema mucosal [Unknown]
  - Lip swelling [Unknown]
  - Rash [Recovered/Resolved]
  - Pruritus [Unknown]
